FAERS Safety Report 20336230 (Version 1)
Quarter: 2022Q1

REPORT INFORMATION
  Report Type: Spontaneous
  Country: US (occurrence: None)
  Receive Date: 20220114
  Receipt Date: 20220114
  Transmission Date: 20220423
  Serious: Yes (Life-Threatening, Hospitalization, Other)
  Sender: FDA-Public Use
  Company Number: None

PATIENT
  Age: 58 Year
  Sex: Female
  Weight: 75.6 kg

DRUGS (15)
  1. OTEZLA [Suspect]
     Active Substance: APREMILAST
     Indication: Psoriatic arthropathy
     Dosage: FREQUENCY : TWICE A DAY;?
     Route: 048
  2. Enbrel 50 mg weekly [Concomitant]
  3. Benicar 40 mg daily [Concomitant]
  4. Demadex 20 mg [Concomitant]
  5. FENOFIBRATE [Concomitant]
     Active Substance: FENOFIBRATE
  6. LEVOTHYROXINE [Concomitant]
     Active Substance: LEVOTHYROXINE
  7. LORATADINE [Concomitant]
     Active Substance: LORATADINE
  8. melatonin 3 mg [Concomitant]
  9. METFORMIN [Concomitant]
     Active Substance: METFORMIN HYDROCHLORIDE
  10. METOPROLOL TARTRATE [Concomitant]
     Active Substance: METOPROLOL TARTRATE
  11. pioglitazone 45 mg daily [Concomitant]
  12. prednisone 5 mg prn [Concomitant]
  13. SIMVASTATIN [Concomitant]
     Active Substance: SIMVASTATIN
  14. TRAMADOL [Concomitant]
     Active Substance: TRAMADOL
  15. Tylenol Extra Strength prn [Concomitant]

REACTIONS (4)
  - Back pain [None]
  - Gastrointestinal infection [None]
  - Sepsis [None]
  - Pain [None]

NARRATIVE: CASE EVENT DATE: 20210620
